FAERS Safety Report 7774419-5 (Version None)
Quarter: 2011Q3

REPORT INFORMATION
  Report Type: 
  Country: None (occurrence: None)
  Receive Date: 20110923
  Receipt Date: 20110913
  Transmission Date: 20111222
  Serious: Yes (Hospitalization)
  Sender: FDA-Public Use
  Company Number: US-ELI_LILLY_AND_COMPANY-US201107001902

PATIENT
  Sex: Female
  Weight: 112.93 kg

DRUGS (10)
  1. OLANZAPINE [Suspect]
     Indication: SCHIZOPHRENIA
     Dosage: 405 MG, UNKNOWN
     Route: 030
     Dates: start: 20110217
  2. OLANZAPINE [Suspect]
     Dosage: UNK UNK, UNKNOWN
     Route: 030
     Dates: start: 20110705
  3. LIPITOR [Concomitant]
     Dosage: 20 MG, QD
     Route: 048
  4. OLANZAPINE [Suspect]
     Dosage: 405 MG, UNKNOWN
     Route: 030
     Dates: start: 20110609
  5. OLANZAPINE [Suspect]
     Dosage: 405 MG, UNKNOWN
     Route: 030
     Dates: start: 20110317
  6. AVELOX [Concomitant]
     Dosage: 400 MG, QD
     Route: 048
  7. OLANZAPINE [Suspect]
     Dosage: 405 MG, UNKNOWN
     Route: 030
     Dates: start: 20110414
  8. LOVAZA [Concomitant]
     Dosage: 1 G, UNKNOWN
     Route: 065
  9. OLANZAPINE [Suspect]
     Dosage: 405 MG, UNKNOWN
     Route: 030
     Dates: start: 20110512
  10. NEURONTIN [Concomitant]
     Dosage: 400 MG, QD
     Route: 048

REACTIONS (7)
  - LOSS OF CONSCIOUSNESS [None]
  - DISORIENTATION [None]
  - DELIRIUM [None]
  - DEPRESSED LEVEL OF CONSCIOUSNESS [None]
  - CONFUSIONAL STATE [None]
  - DIZZINESS [None]
  - SEDATION [None]
